FAERS Safety Report 8859617 (Version 1)
Quarter: 2012Q4

REPORT INFORMATION
  Report Type: 
  Country: NL (occurrence: NL)
  Receive Date: 20121025
  Receipt Date: 20121025
  Transmission Date: 20130627
  Serious: Yes (Hospitalization)
  Sender: FDA-Public Use
  Company Number: NL-PFIZER INC-2012261801

PATIENT
  Sex: Female
  Weight: 64.1 kg

DRUGS (8)
  1. GENOTROPIN [Suspect]
     Indication: GROWTH HORMONE DEFICIENCY
     Dosage: 0.2 mg, 7/wk
     Route: 058
     Dates: start: 20041222
  2. QUINAGOLIDE [Concomitant]
     Indication: NEOPLASM
     Dosage: UNK
     Dates: start: 19960701
  3. ALENDRONATE SODIUM [Concomitant]
     Indication: OSTEOPOROSIS
     Dosage: UNK
     Dates: start: 19970710
  4. CALCIUM [Concomitant]
     Indication: OSTEOPOROSIS
     Dosage: UNK
     Dates: start: 19970710
  5. VITAMIN D [Concomitant]
     Indication: VITAMIN D DEFICIENCY
     Dosage: UNK
     Dates: start: 19980101
  6. NORPROLAC [Concomitant]
     Indication: HYPERPROLACTINAEMIA
     Dosage: UNK
     Dates: start: 19990123
  7. HYDROCORTISONE [Concomitant]
     Indication: BLOOD CORTICOTROPHIN DECREASED
     Dosage: UNK
     Dates: start: 19820728
  8. LEVOTHYROXINE [Concomitant]
     Indication: BLOOD THYROID STIMULATING HORMONE DECREASED
     Dosage: UNK
     Dates: start: 19820728

REACTIONS (1)
  - Toxicity to various agents [Unknown]
